FAERS Safety Report 18695007 (Version 2)
Quarter: 2021Q4

REPORT INFORMATION
  Report Type: Spontaneous
  Country: EG (occurrence: EG)
  Receive Date: 20210104
  Receipt Date: 20211215
  Transmission Date: 20220303
  Serious: Yes (Death)
  Sender: FDA-Public Use
  Company Number: EG-PFIZER INC-2020519190

PATIENT
  Age: 68 Year
  Sex: Female

DRUGS (5)
  1. IBRANCE [Suspect]
     Active Substance: PALBOCICLIB
     Indication: Breast cancer metastatic
     Dosage: 125 MG (1 DF), CYCLIC (ONCE DAILY, 3 WEEKS ON/1 WEEK OFF)
     Route: 048
     Dates: start: 202008
  2. IBRANCE [Suspect]
     Active Substance: PALBOCICLIB
     Indication: Hormone receptor positive HER2 negative breast cancer
  3. FEMARA [Concomitant]
     Active Substance: LETROZOLE
     Dosage: 2.5 DF, DAILY
  4. OSTEOCARE CALCIUM MAGNESIUM VITAMIN D3 [Concomitant]
     Dosage: 1 DF, DAILY
  5. XGEVA [Concomitant]
     Active Substance: DENOSUMAB
     Dosage: UNK, MONTHLY
     Route: 058

REACTIONS (1)
  - Death [Fatal]

NARRATIVE: CASE EVENT DATE: 20201227
